FAERS Safety Report 22066149 (Version 1)
Quarter: 2023Q1

REPORT INFORMATION
  Report Type: Spontaneous
  Country: US (occurrence: None)
  Receive Date: 20230306
  Receipt Date: 20230306
  Transmission Date: 20230418
  Serious: No
  Sender: FDA-Public Use
  Company Number: None

PATIENT
  Age: 41 Year
  Sex: Female
  Weight: 94.5 kg

DRUGS (3)
  1. SLYND [Suspect]
     Active Substance: DROSPIRENONE
     Indication: Uterine leiomyoma
     Route: 048
     Dates: start: 20230222
  2. VILAZODONE [Concomitant]
     Active Substance: VILAZODONE
  3. Iron supplement 45 mg [Concomitant]

REACTIONS (5)
  - Depression [None]
  - Crying [None]
  - Intrusive thoughts [None]
  - Mental disorder [None]
  - Suicidal ideation [None]

NARRATIVE: CASE EVENT DATE: 20230304
